FAERS Safety Report 10050824 (Version 1)
Quarter: 2014Q2

REPORT INFORMATION
  Report Type: Spontaneous
  Country: US (occurrence: US)
  Receive Date: 20140401
  Receipt Date: 20140401
  Transmission Date: 20141212
  Serious: No
  Sender: FDA-Public Use
  Company Number: US-ASTRAZENECA-2014SE04189

PATIENT
  Age: 61 Year
  Sex: Male
  Weight: 113.4 kg

DRUGS (2)
  1. NEXIUM [Suspect]
     Indication: GASTROOESOPHAGEAL REFLUX DISEASE
     Route: 048
  2. NEXIUM [Suspect]
     Indication: BARRETT^S OESOPHAGUS
     Route: 048

REACTIONS (9)
  - Injury associated with device [Unknown]
  - Dysphagia [Unknown]
  - Umbilical hernia [Unknown]
  - Nephrolithiasis [Unknown]
  - Muscle spasms [Unknown]
  - Muscle spasms [Unknown]
  - Muscle twitching [Unknown]
  - Blood magnesium decreased [Unknown]
  - Intentional product misuse [Unknown]
